FAERS Safety Report 4322867-8 (Version None)
Quarter: 2004Q1

REPORT INFORMATION
  Report Type: 
  Country: None (occurrence: None)
  Receive Date: 20040322
  Receipt Date: 20040308
  Transmission Date: 20041129
  Serious: Yes (Hospitalization)
  Sender: FDA-Public Use
  Company Number: 2002-102368-NL

PATIENT
  Age: 84 Year
  Sex: Male

DRUGS (8)
  1. DEXAMETHASONE [Suspect]
     Dosage: 2 MG, ORAL
     Route: 048
  2. PREDNISOLONE [Suspect]
     Dosage: 10 MG, ORAL
     Route: 048
  3. BENDROFLUAZIDE [Concomitant]
  4. DIGOXIN [Concomitant]
  5. CO-CODAMOL [Concomitant]
  6. LATANOPROST [Concomitant]
  7. MTRAZEPAM [Concomitant]
  8. MORPHINE SULFATE [Concomitant]

REACTIONS (4)
  - ASTHENIA [None]
  - FALL [None]
  - HOARSENESS [None]
  - HYPERGLYCAEMIA [None]
